FAERS Safety Report 25766747 (Version 3)
Quarter: 2025Q3

REPORT INFORMATION
  Report Type: Spontaneous
  Country: CA (occurrence: CA)
  Receive Date: 20250905
  Receipt Date: 20250916
  Transmission Date: 20251021
  Serious: Yes (Other)
  Sender: GUERBET
  Company Number: CA-GUERBET / CANADA-CA-20250006

PATIENT
  Age: 80 Year
  Sex: Female

DRUGS (2)
  1. LIPIODOL [Suspect]
     Active Substance: ETHIODIZED OIL
     Indication: Transcatheter arterial chemoembolisation
     Dosage: LIPIODOL MIXED WITH BLEOMYCIN (12 UNITS TOTAL)
     Route: 013
  2. BLEOMYCIN [Suspect]
     Active Substance: BLEOMYCIN SULFATE
     Indication: Transcatheter arterial chemoembolisation
     Route: 013

REACTIONS (3)
  - Bile duct stenosis [Not Recovered/Not Resolved]
  - Cholangitis [Not Recovered/Not Resolved]
  - Product use in unapproved indication [Not Recovered/Not Resolved]
